FAERS Safety Report 13670641 (Version 1)
Quarter: 2017Q2

REPORT INFORMATION
  Report Type: Spontaneous
  Country: US (occurrence: US)
  Receive Date: 20170620
  Receipt Date: 20170620
  Transmission Date: 20170830
  Serious: No
  Sender: FDA-Public Use
  Company Number: US-BAXALTA-2017BLT005825

PATIENT
  Age: 8 Year
  Sex: Female

DRUGS (1)
  1. GAMMAGARD LIQUID [Suspect]
     Active Substance: HUMAN IMMUNOGLOBULIN G
     Indication: PRIMARY IMMUNODEFICIENCY SYNDROME
     Route: 042

REACTIONS (4)
  - Fatigue [Unknown]
  - Nausea [Unknown]
  - Headache [Unknown]
  - Vomiting [Unknown]

NARRATIVE: CASE EVENT DATE: 20160831
